FAERS Safety Report 5035839-5 (Version None)
Quarter: 2006Q2

REPORT INFORMATION
  Report Type: 
  Country: None (occurrence: None)
  Receive Date: 20060622
  Receipt Date: 20060608
  Transmission Date: 20061013
  Serious: Yes (Hospitalization)
  Sender: FDA-Public Use
  Company Number: 200612750BWH

PATIENT
  Age: 19 Year
  Sex: Male
  Weight: 84.1 kg

DRUGS (14)
  1. SORAFENIB OR PLACEBO (UNCODEABLE ^INVESTIGATIONAL DRUG^) [Suspect]
     Indication: METASTATIC MALIGNANT MELANOMA
     Dosage: 400 MG, BID, ORAL
     Route: 048
     Dates: start: 20060324, end: 20060428
  2. DACARBAZINE [Suspect]
     Indication: METASTATIC MALIGNANT MELANOMA
     Dosage: 2100 MG, TOTAL DAILY, INTRAVEN
     Route: 042
     Dates: start: 20060324
  3. DACARBAZINE [Suspect]
     Indication: METASTATIC MALIGNANT MELANOMA
     Dosage: 2100 MG, TOTAL DAILY, INTRAVEN
     Route: 042
     Dates: start: 20060421
  4. MULTI-VITAMIN [Concomitant]
  5. ESTER C [Concomitant]
  6. COMPAZINE [Concomitant]
  7. ZOVIRAX [Concomitant]
  8. RED BLOOD CELLS [Concomitant]
  9. ACETAMINOPHEN [Concomitant]
  10. BENADRYL [Concomitant]
  11. KYTRIL [Concomitant]
  12. NEULASTA [Concomitant]
  13. ARANESP [Concomitant]
  14. ATIVAN [Concomitant]

REACTIONS (31)
  - ABDOMINAL ABSCESS [None]
  - ALANINE AMINOTRANSFERASE INCREASED [None]
  - BACTERIA BODY FLUID IDENTIFIED [None]
  - BLOOD ALBUMIN DECREASED [None]
  - BLOOD AMYLASE INCREASED [None]
  - BLOOD LACTATE DEHYDROGENASE INCREASED [None]
  - BLOOD POTASSIUM DECREASED [None]
  - BLOOD SODIUM DECREASED [None]
  - BLOOD UREA DECREASED [None]
  - DEHYDRATION [None]
  - DISEASE PROGRESSION [None]
  - ESCHERICHIA INFECTION [None]
  - HAEMATOCRIT DECREASED [None]
  - HAEMOGLOBIN DECREASED [None]
  - INTUSSUSCEPTION [None]
  - LIPASE INCREASED [None]
  - MALIGNANT NEOPLASM PROGRESSION [None]
  - METASTASES TO ABDOMINAL CAVITY [None]
  - METASTASES TO ADRENALS [None]
  - METASTASES TO GASTROINTESTINAL TRACT [None]
  - METASTASES TO LUNG [None]
  - METASTASES TO LYMPH NODES [None]
  - MUSCLE DISORDER [None]
  - ORAL INTAKE REDUCED [None]
  - PANCREATITIS [None]
  - PLATELET COUNT INCREASED [None]
  - PLEURAL EFFUSION [None]
  - PNEUMONIA [None]
  - POSTOPERATIVE ABSCESS [None]
  - WEIGHT DECREASED [None]
  - WHITE BLOOD CELL COUNT INCREASED [None]
